FAERS Safety Report 6469392-6 (Version None)
Quarter: 2009Q4

REPORT INFORMATION
  Report Type: 
  Country: None (occurrence: None)
  Receive Date: 20091203
  Receipt Date: 20071015
  Transmission Date: 20100525
  Serious: Yes (Hospitalization)
  Sender: FDA-Public Use
  Company Number: US-ELI_LILLY_AND_COMPANY-US200710000391

PATIENT
  Sex: Female

DRUGS (3)
  1. HUMULIN 70/30 [Suspect]
     Dosage: 36.5 U, UNK
  2. HUMULIN 70/30 [Suspect]
     Dosage: 37 U, UNK
  3. HUMULIN R [Suspect]
     Dosage: UNK, AS NEEDED

REACTIONS (4)
  - ALLERGY TO FERMENTED PRODUCTS [None]
  - BLOOD GLUCOSE INCREASED [None]
  - HIP SURGERY [None]
  - WEIGHT DECREASED [None]
